FAERS Safety Report 8519671-3 (Version None)
Quarter: 2012Q3

REPORT INFORMATION
  Report Type: 
  Country: None (occurrence: None)
  Receive Date: 20120719
  Receipt Date: 20120706
  Transmission Date: 20120928
  Serious: No
  Sender: FDA-Public Use
  Company Number: US-009507513-1207USA001293

PATIENT

DRUGS (3)
  1. ALPHAGAN [Concomitant]
  2. ZIOPTAN [Suspect]
     Indication: GLAUCOMA
     Dosage: ONE DROP BOTH EYES, QD
     Route: 047
  3. PILOCARPINE HYDROCHLORIDE [Concomitant]

REACTIONS (1)
  - PRURITUS GENERALISED [None]
